FAERS Safety Report 20595825 (Version 8)
Quarter: 2023Q4

REPORT INFORMATION
  Report Type: Spontaneous
  Country: US (occurrence: US)
  Receive Date: 20220315
  Receipt Date: 20231128
  Transmission Date: 20240110
  Serious: No
  Sender: FDA-Public Use
  Company Number: US-PFIZER INC-2021138500

PATIENT
  Age: 72 Year
  Sex: Female

DRUGS (6)
  1. EUCRISA [Suspect]
     Active Substance: CRISABOROLE
     Indication: Dermatitis
     Dosage: UNK, 2X/DAY, APPLY THIN LAYER TO AFFECTED AREAS/ LESIONS TWICE DAILY
     Route: 061
  2. EUCRISA [Suspect]
     Active Substance: CRISABOROLE
     Indication: Dermatitis contact
  3. EUCRISA [Suspect]
     Active Substance: CRISABOROLE
     Indication: Rash
  4. EUCRISA [Suspect]
     Active Substance: CRISABOROLE
     Indication: Hyperhidrosis
  5. PARAFFIN [Concomitant]
     Active Substance: PARAFFIN
     Dosage: USING VASELINE IN BETWEEN TO KEEP SKIN MOIST
  6. AMMONIUM LACTATE [Concomitant]
     Active Substance: AMMONIUM LACTATE
     Dosage: UNK

REACTIONS (6)
  - Off label use [Unknown]
  - Drug effective for unapproved indication [Unknown]
  - Muscle strain [Unknown]
  - Skin disorder [Unknown]
  - Hypersensitivity [Unknown]
  - Condition aggravated [Unknown]
